FAERS Safety Report 5226686-X (Version None)
Quarter: 2007Q1

REPORT INFORMATION
  Report Type: 
  Country: None (occurrence: None)
  Receive Date: 20070201
  Receipt Date: 20070118
  Transmission Date: 20070707
  Serious: Yes (Other)
  Sender: FDA-Public Use
  Company Number: US-ELI_LILLY_AND_COMPANY-US200701004502

PATIENT
  Age: 30 Year
  Sex: Male

DRUGS (2)
  1. STRATTERA [Suspect]
     Dosage: 60 MG, UNK
     Dates: start: 20060101, end: 20070101
  2. ALCOHOL [Concomitant]

REACTIONS (1)
  - PANCREATITIS ACUTE [None]
